FAERS Safety Report 8461785-0 (Version None)
Quarter: 2012Q2

REPORT INFORMATION
  Report Type: 
  Country: None (occurrence: None)
  Receive Date: 20120625
  Receipt Date: 20120615
  Transmission Date: 20120825
  Serious: Yes (Other)
  Sender: FDA-Public Use
  Company Number: US-BAYER-2012-059887

PATIENT
  Age: 21 Year
  Sex: Female

DRUGS (2)
  1. YASMIN [Suspect]
     Dosage: UNK
     Dates: start: 20070401, end: 20080301
  2. YAZ [Suspect]
     Dosage: UNK
     Dates: start: 20070401, end: 20080301

REACTIONS (4)
  - INJURY [None]
  - PAIN [None]
  - CHOLECYSTECTOMY [None]
  - EMOTIONAL DISTRESS [None]
